FAERS Safety Report 6801072-7 (Version None)
Quarter: 2010Q2

REPORT INFORMATION
  Report Type: 
  Country: None (occurrence: None)
  Receive Date: 20100624
  Receipt Date: 20100615
  Transmission Date: 20101027
  Serious: Yes (Disabling)
  Sender: FDA-Public Use
  Company Number: DSU-2010-02758

PATIENT
  Age: 72 Year
  Sex: Female
  Weight: 220 kg

DRUGS (1)
  1. OLMESARTAN MEDOXOMIL [Suspect]
     Indication: DRUG USE FOR UNKNOWN INDICATION
     Dosage: 20 MG (20 MG, QD), PER ORAL
     Route: 048

REACTIONS (3)
  - CONDITION AGGRAVATED [None]
  - INSOMNIA [None]
  - PAIN IN EXTREMITY [None]
